FAERS Safety Report 25893681 (Version 1)
Quarter: 2025Q4

REPORT INFORMATION
  Report Type: Spontaneous
  Country: US (occurrence: US)
  Receive Date: 20251008
  Receipt Date: 20251008
  Transmission Date: 20260118
  Serious: Yes (Hospitalization, Other)
  Sender: JOHNSON AND JOHNSON
  Company Number: US-JNJFOC-20250946657

PATIENT

DRUGS (2)
  1. RYBREVANT [Suspect]
     Active Substance: AMIVANTAMAB-VMJW
     Indication: Product used for unknown indication
     Route: 065
  2. LAZERTINIB [Suspect]
     Active Substance: LAZERTINIB
     Indication: Product used for unknown indication
     Route: 065

REACTIONS (2)
  - Interstitial lung disease [Unknown]
  - Pneumonitis [Unknown]
